FAERS Safety Report 25019904 (Version 2)
Quarter: 2025Q2

REPORT INFORMATION
  Report Type: Spontaneous
  Country: US (occurrence: US)
  Receive Date: 20250227
  Receipt Date: 20250418
  Transmission Date: 20250716
  Serious: No
  Sender: BIOMARIN
  Company Number: US-SA-2025SA051605

PATIENT

DRUGS (2)
  1. ALDURAZYME [Suspect]
     Active Substance: LARONIDASE
     Indication: Product used for unknown indication
     Dosage: 8.7 MG, QW
     Route: 042
  2. ALDURAZYME [Suspect]
     Active Substance: LARONIDASE
     Dosage: 8.7 MG, QW
     Route: 042
     Dates: start: 2025, end: 2025

REACTIONS (2)
  - Influenza [Unknown]
  - Illness [Unknown]

NARRATIVE: CASE EVENT DATE: 20250101
